FAERS Safety Report 5001915-6 (Version None)
Quarter: 2006Q2

REPORT INFORMATION
  Report Type: 
  Country: None (occurrence: None)
  Receive Date: 20060512
  Receipt Date: 20060512
  Transmission Date: 20061013
  Serious: Yes (Disabling)
  Sender: FDA-Public Use
  Company Number: None

PATIENT
  Age: 34 Year
  Sex: Male
  Weight: 113.3 kg

DRUGS (2)
  1. METFORMIN [Suspect]
     Dosage: 1000MG  BID PO
     Route: 048
     Dates: start: 20060116, end: 20060325
  2. METFORMIN [Suspect]
     Dosage: 850MG BID PO
     Route: 048
     Dates: start: 20060407, end: 20060424

REACTIONS (1)
  - LIVER FUNCTION TEST ABNORMAL [None]
